FAERS Safety Report 12580057 (Version 1)
Quarter: 2016Q3

REPORT INFORMATION
  Report Type: Spontaneous
  Country: NO (occurrence: NO)
  Receive Date: 20160721
  Receipt Date: 20160721
  Transmission Date: 20161109
  Serious: Yes (Hospitalization)
  Sender: FDA-Public Use
  Company Number: NO-SA-2016SA130025

PATIENT
  Age: 78 Year
  Sex: Female

DRUGS (5)
  1. MULTAQ [Suspect]
     Active Substance: DRONEDARONE
     Indication: ATRIAL FIBRILLATION
     Route: 048
  2. SANDOZ BISOPROLOL [Suspect]
     Active Substance: BISOPROLOL
     Indication: CARDIOMYOPATHY
     Dosage: DOSED 1-2 TIMES DAILY
     Route: 048
  3. EUTHYROX [Concomitant]
     Active Substance: LEVOTHYROXINE SODIUM
     Indication: HYPOTHYROIDISM
     Route: 048
  4. CRATAEGUS [Suspect]
     Active Substance: HAWTHORN LEAF WITH FLOWER
     Indication: CARDIAC DISORDER
     Dosage: UNKNOWN DOSE
     Route: 048
  5. SAROTEX [Concomitant]
     Active Substance: AMITRIPTYLINE HYDROCHLORIDE
     Dosage: AS NEEDED
     Route: 048

REACTIONS (2)
  - Atrioventricular block complete [Recovered/Resolved with Sequelae]
  - Hypotension [None]
